FAERS Safety Report 23931126 (Version 1)
Quarter: 2024Q2

REPORT INFORMATION
  Report Type: Spontaneous
  Country: US (occurrence: US)
  Receive Date: 20240603
  Receipt Date: 20240603
  Transmission Date: 20240717
  Serious: No
  Sender: FDA-Public Use
  Company Number: US-ABBVIE-5781985

PATIENT
  Sex: Male

DRUGS (1)
  1. RINVOQ [Suspect]
     Active Substance: UPADACITINIB
     Indication: Product used for unknown indication
     Route: 048
     Dates: start: 202308

REACTIONS (5)
  - Headache [Unknown]
  - Malaise [Recovered/Resolved]
  - Crohn^s disease [Unknown]
  - Nausea [Unknown]
  - Visual impairment [Unknown]
